FAERS Safety Report 8503403-9 (Version None)
Quarter: 2012Q3

REPORT INFORMATION
  Report Type: 
  Country: None (occurrence: None)
  Receive Date: 20120711
  Receipt Date: 20120625
  Transmission Date: 20120928
  Serious: No
  Sender: FDA-Public Use
  Company Number: US-ASTRAZENECA-2012SE06903

PATIENT
  Age: 39 Year
  Sex: Female

DRUGS (2)
  1. SEROQUEL [Suspect]
     Indication: BIPOLAR DISORDER
     Route: 048
  2. LATUDA [Concomitant]

REACTIONS (8)
  - EATING DISORDER [None]
  - CONFUSIONAL STATE [None]
  - INSOMNIA [None]
  - FATIGUE [None]
  - DEHYDRATION [None]
  - ADVERSE EVENT [None]
  - DRUG DOSE OMISSION [None]
  - MEMORY IMPAIRMENT [None]
